FAERS Safety Report 11621731 (Version 6)
Quarter: 2018Q4

REPORT INFORMATION
  Report Type: Report from Study
  Country: JP (occurrence: JP)
  Receive Date: 20151013
  Receipt Date: 20181207
  Transmission Date: 20190204
  Serious: Yes (Other)
  Sender: FDA-Public Use
  Company Number: JP-ROCHE-1644258

PATIENT
  Age: 78 Year
  Sex: Female
  Weight: 50 kg

DRUGS (14)
  1. CRAVIT [Concomitant]
     Active Substance: LEVOFLOXACIN
     Route: 047
     Dates: start: 20141127, end: 20141127
  2. CRAVIT [Concomitant]
     Active Substance: LEVOFLOXACIN
     Route: 047
     Dates: start: 20150326, end: 20150326
  3. CRAVIT [Concomitant]
     Active Substance: LEVOFLOXACIN
     Route: 047
     Dates: start: 20150602, end: 20150602
  4. EYLEA [Concomitant]
     Active Substance: AFLIBERCEPT
     Indication: RETINAL VEIN OCCLUSION
     Route: 065
     Dates: start: 20150919
  5. RANIBIZUMAB. [Suspect]
     Active Substance: RANIBIZUMAB
     Dosage: RIGHT EYE
     Route: 050
     Dates: start: 20150702, end: 20150702
  6. RANIBIZUMAB. [Suspect]
     Active Substance: RANIBIZUMAB
     Indication: RETINAL VEIN OCCLUSION
     Dosage: RIGHT EYE
     Route: 050
     Dates: start: 20140924, end: 20140924
  7. RANIBIZUMAB. [Suspect]
     Active Substance: RANIBIZUMAB
     Dosage: RIGHT EYE
     Route: 050
     Dates: start: 20150602
  8. CARNACULIN [Concomitant]
     Active Substance: KALLIDINOGENASE
     Indication: RETINAL VEIN OCCLUSION
     Route: 048
     Dates: end: 20150206
  9. CRAVIT [Concomitant]
     Active Substance: LEVOFLOXACIN
     Indication: ANTIBIOTIC PROPHYLAXIS
     Route: 047
     Dates: start: 20140924, end: 20150702
  10. RANIBIZUMAB. [Suspect]
     Active Substance: RANIBIZUMAB
     Dosage: RIGHT EYE
     Route: 050
     Dates: start: 20141127
  11. RANIBIZUMAB. [Suspect]
     Active Substance: RANIBIZUMAB
     Dosage: RIGHT EYE
     Route: 050
     Dates: start: 20150326
  12. RANIBIZUMAB. [Suspect]
     Active Substance: RANIBIZUMAB
     Dosage: RIGHT EYE
     Route: 050
     Dates: start: 20150130
  13. CRAVIT [Concomitant]
     Active Substance: LEVOFLOXACIN
     Route: 047
     Dates: start: 20150130, end: 20150130
  14. CRAVIT [Concomitant]
     Active Substance: LEVOFLOXACIN
     Route: 047
     Dates: start: 20150702, end: 20150702

REACTIONS (4)
  - Detachment of retinal pigment epithelium [Recovered/Resolved]
  - Iris neovascularisation [Recovered/Resolved]
  - Intraocular pressure increased [Recovered/Resolved]
  - Hypoacusis [Recovered/Resolved]

NARRATIVE: CASE EVENT DATE: 20141126
